FAERS Safety Report 4482139-8 (Version None)
Quarter: 2004Q4

REPORT INFORMATION
  Report Type: 
  Country: None (occurrence: None)
  Receive Date: 20041020
  Receipt Date: 20041011
  Transmission Date: 20050328
  Serious: Yes (Hospitalization)
  Sender: FDA-Public Use
  Company Number: 2004-10-0488

PATIENT
  Age: 58 Year
  Sex: Female

DRUGS (3)
  1. AERIUS (DESLORATADINE) TABLETS    'LIKE CLARNIEX' [Suspect]
     Dosage: 5 MG Q ORAL
     Route: 048
     Dates: start: 20040811, end: 20040813
  2. VASTAREL [Suspect]
     Dosage: ORAL
     Route: 048
     Dates: end: 20040813
  3. CLIMASTON (ESTRADIOL) [Suspect]
     Dates: end: 20040813

REACTIONS (2)
  - DISEASE PROGRESSION [None]
  - GLAUCOMA [None]
